FAERS Safety Report 5150909-9 (Version None)
Quarter: 2006Q4

REPORT INFORMATION
  Report Type: 
  Country: None (occurrence: None)
  Receive Date: 20061114
  Receipt Date: 20060905
  Transmission Date: 20070319
  Serious: Yes (Hospitalization)
  Sender: FDA-Public Use
  Company Number: DE-BOEHRINGER INGELHEIM GMBH, GERMANY-2006-DE-04694DE

PATIENT
  Sex: Male
  Weight: 95 kg

DRUGS (10)
  1. MICARDIS HCT [Suspect]
     Indication: ESSENTIAL HYPERTENSION
     Dosage: 80 MG TELMISARTAN, 12,5 MG HCT
     Dates: start: 20060405, end: 20060601
  2. VERAPAMIL [Suspect]
     Indication: HYPERTENSION
     Dates: end: 20060601
  3. VERAPAMIL [Suspect]
     Dates: start: 20060601
  4. DIGITOXIN TAB [Suspect]
     Indication: CARDIOMYOPATHY
     Dates: end: 20060601
  5. DIGITOXIN TAB [Suspect]
     Indication: ARRHYTHMIA
     Dates: start: 20060601
  6. DIURETICS [Concomitant]
     Indication: HYPERTENSION
  7. ACE-HEMMER [Concomitant]
     Indication: HYPERTENSION
  8. CALCIUM ANTAGONIST [Concomitant]
     Indication: HYPERTENSION
  9. METFORMIN [Concomitant]
     Indication: DIABETES MELLITUS
  10. ACARBOSE [Concomitant]
     Indication: DIABETES MELLITUS

REACTIONS (1)
  - ATRIAL FIBRILLATION [None]
